FAERS Safety Report 25771564 (Version 1)
Quarter: 2025Q3

REPORT INFORMATION
  Report Type: Spontaneous
  Country: US (occurrence: US)
  Receive Date: 20250908
  Receipt Date: 20250908
  Transmission Date: 20251021
  Serious: No
  Sender: DOMPE FARMACEUTICI
  Company Number: US-FARMAPROD-202504-1433

PATIENT
  Sex: Female

DRUGS (8)
  1. OXERVATE [Suspect]
     Active Substance: CENEGERMIN-BKBJ
     Indication: Neurotrophic keratopathy
     Route: 047
  2. TRIFLURIDINE [Concomitant]
     Active Substance: TRIFLURIDINE
  3. FERROUS GLUCONATE [Concomitant]
     Active Substance: FERROUS GLUCONATE
  4. METOPROLOL SUCCINATE [Concomitant]
     Active Substance: METOPROLOL SUCCINATE
  5. LOSARTAN POTASSIUM [Concomitant]
     Active Substance: LOSARTAN POTASSIUM
  6. FUROSEMIDE [Concomitant]
     Active Substance: FUROSEMIDE
  7. MAGNESIUM [Concomitant]
     Active Substance: MAGNESIUM
  8. OFLOXACIN [Concomitant]
     Active Substance: OFLOXACIN
     Indication: Contact lens therapy
     Route: 061
     Dates: start: 20250328, end: 20250425

REACTIONS (4)
  - Drug hypersensitivity [Recovered/Resolved]
  - Eye pruritus [Unknown]
  - Eye swelling [Unknown]
  - Eye discharge [Unknown]
